FAERS Safety Report 15158566 (Version 1)
Quarter: 2018Q3

REPORT INFORMATION
  Report Type: Spontaneous
  Country: US (occurrence: US)
  Receive Date: 20180718
  Receipt Date: 20180718
  Transmission Date: 20181010
  Serious: No
  Sender: FDA-Public Use
  Company Number: US-ENDO PHARMACEUTICALS INC-2017-004824

PATIENT
  Age: 53 Year
  Sex: Female

DRUGS (14)
  1. MEGACE ES [Suspect]
     Active Substance: MEGESTROL ACETATE
     Indication: STRESS
     Dosage: 1 TSP, OD
     Route: 048
     Dates: start: 201701, end: 201705
  2. AMBIEN [Concomitant]
     Active Substance: ZOLPIDEM TARTRATE
     Indication: INSOMNIA
  3. AMERGE [Concomitant]
     Active Substance: NARATRIPTAN HYDROCHLORIDE
     Indication: MIGRAINE
  4. MEGACE ES [Suspect]
     Active Substance: MEGESTROL ACETATE
     Indication: NAUSEA
  5. MEGACE ES [Suspect]
     Active Substance: MEGESTROL ACETATE
     Indication: GASTRIC DISORDER
  6. MEGESTROL ACETATE. [Concomitant]
     Active Substance: MEGESTROL ACETATE
     Indication: STRESS
  7. TESTOSTERONE/ESTROGEN [Concomitant]
     Active Substance: ESTROGENS\TESTOSTERONE
     Indication: MENOPAUSE
  8. MEGESTROL ACETATE. [Concomitant]
     Active Substance: MEGESTROL ACETATE
     Indication: NAUSEA
  9. SYNTHROID [Concomitant]
     Active Substance: LEVOTHYROXINE SODIUM
     Indication: THYROID DISORDER
  10. MEGACE ES [Suspect]
     Active Substance: MEGESTROL ACETATE
     Indication: MOOD ALTERED
  11. MEGACE ES [Suspect]
     Active Substance: MEGESTROL ACETATE
     Indication: FEEDING DISORDER
  12. MEGESTROL ACETATE. [Concomitant]
     Active Substance: MEGESTROL ACETATE
     Indication: MOOD ALTERED
  13. MEGESTROL ACETATE. [Concomitant]
     Active Substance: MEGESTROL ACETATE
     Indication: FEEDING DISORDER
  14. MEGESTROL ACETATE. [Concomitant]
     Active Substance: MEGESTROL ACETATE
     Indication: GASTRIC DISORDER

REACTIONS (2)
  - Hypersensitivity [Recovered/Resolved]
  - Off label use [Recovered/Resolved]

NARRATIVE: CASE EVENT DATE: 201701
